FAERS Safety Report 10354686 (Version 5)
Quarter: 2016Q1

REPORT INFORMATION
  Report Type: Spontaneous
  Country: AR (occurrence: AR)
  Receive Date: 20140731
  Receipt Date: 20160222
  Transmission Date: 20160525
  Serious: Yes (Hospitalization, Other)
  Sender: FDA-Public Use
  Company Number: AR-PFIZER INC-2014210529

PATIENT
  Age: 53 Year
  Sex: Female

DRUGS (6)
  1. SUTENT [Suspect]
     Active Substance: SUNITINIB MALATE
     Indication: PANCREATIC NEUROENDOCRINE TUMOUR
     Dosage: 37.5 MG, DAILY (WITHOUT REST) (25 MG)
     Dates: start: 20130826
  2. IBUPROFENO [Concomitant]
     Active Substance: IBUPROFEN
     Indication: PAIN
     Dosage: 600 MG, AS NEEDED
  3. OPTAMOX DUO [Concomitant]
     Indication: PAIN
     Dosage: 1 G, AS NEEDED
  4. HYDROGEN PEROXIDE. [Concomitant]
     Active Substance: HYDROGEN PEROXIDE
     Dosage: MOUTHWASH
     Route: 048
  5. SUTENT [Suspect]
     Active Substance: SUNITINIB MALATE
     Dosage: 37.5 MG, DAILY (WITHOUT REST) (12.5 MG )
     Dates: start: 20130826
  6. LEVOTHYROXINE. [Concomitant]
     Active Substance: LEVOTHYROXINE
     Dosage: 50 MG, UNK

REACTIONS (5)
  - Wound [Not Recovered/Not Resolved]
  - Laboratory test abnormal [Unknown]
  - Osteonecrosis of jaw [Not Recovered/Not Resolved]
  - Procedural pain [Not Recovered/Not Resolved]
  - Tooth disorder [Not Recovered/Not Resolved]

NARRATIVE: CASE EVENT DATE: 201402
